FAERS Safety Report 8925768 (Version 2)
Quarter: 2013Q2

REPORT INFORMATION
  Report Type: Spontaneous
  Country: US (occurrence: US)
  Receive Date: 20121126
  Receipt Date: 20130524
  Transmission Date: 20140414
  Serious: Yes (Death, Life-Threatening, Hospitalization)
  Sender: FDA-Public Use
  Company Number: US-BAYER-2012-120780

PATIENT
  Age: 42 Year
  Sex: Female
  Weight: 104.31 kg

DRUGS (19)
  1. YAZ [Suspect]
     Dosage: UNK
     Dates: start: 200909, end: 200911
  2. SEROQUEL [Concomitant]
     Dosage: 300 MG, UNK
     Route: 048
     Dates: start: 20090702
  3. CAMPRAL [Concomitant]
     Dosage: 333 MG, UNK
     Route: 048
     Dates: start: 20090702
  4. BUSPIRONE [Concomitant]
     Dosage: 15 MG, UNK
     Route: 048
     Dates: start: 20090702
  5. TEMAZEPAM [Concomitant]
     Dosage: 30 MG, UNK
     Route: 048
     Dates: start: 20090702
  6. ZOLPIDEM TARTRATE [Concomitant]
     Dosage: 10 MG, UNK
     Route: 048
     Dates: start: 20090702
  7. LORAZEPAM [Concomitant]
     Dosage: 0.5 MG, UNK
     Route: 048
     Dates: start: 20090702
  8. OXYCODONE [Concomitant]
     Dosage: 5 MG, UNK
     Route: 048
     Dates: start: 20091030
  9. CHLORZOXAZONE [Concomitant]
     Dosage: 500 MG, UNK
     Dates: start: 20090730
  10. LAMICTAL [Concomitant]
     Dosage: UNK
     Route: 048
     Dates: start: 20090715
  11. CLONAZEPAM [Concomitant]
     Dosage: 1 MG, UNK
     Route: 048
     Dates: start: 20090715
  12. LAMOTRIGINE [Concomitant]
     Dosage: 100 MG, UNK
     Route: 048
     Dates: start: 20090814
  13. ABILIFY [Concomitant]
     Dosage: 5 MG, UNK
     Route: 048
     Dates: start: 20090818
  14. IBUPROFEN [Concomitant]
     Dosage: 600 MG, UNK
     Route: 048
     Dates: start: 20090902
  15. AFRIN [OXYMETAZOLINE] [Concomitant]
     Dosage: UNK
     Route: 045
     Dates: start: 20090902
  16. ZYRTEC-D [Concomitant]
     Dosage: UNK
     Route: 048
     Dates: start: 20090902
  17. TRIAZOLAM [Concomitant]
     Dosage: 0.25 MG, UNK
     Route: 048
     Dates: start: 20091012
  18. GEODON [Concomitant]
     Dosage: 80 MG, UNK
     Route: 048
     Dates: start: 20091012
  19. TYLENOL [PARACETAMOL] [Concomitant]

REACTIONS (9)
  - Pulmonary embolism [Fatal]
  - Deep vein thrombosis [None]
  - Suicide attempt [None]
  - Suicidal ideation [None]
  - Mental disorder [None]
  - Injury [Fatal]
  - Emotional distress [None]
  - Anxiety [None]
  - Pain [None]
